FAERS Safety Report 10602162 (Version 2)
Quarter: 2014Q4

REPORT INFORMATION
  Report Type: Report from Study
  Country: CH (occurrence: CH)
  Receive Date: 20141124
  Receipt Date: 20141124
  Transmission Date: 20150529
  Serious: Yes (Death)
  Sender: FDA-Public Use
  Company Number: CH-JNJFOC-20141110384

PATIENT
  Sex: Male
  Weight: 61 kg

DRUGS (1)
  1. IBRUTINIB [Suspect]
     Active Substance: IBRUTINIB
     Indication: CHRONIC LYMPHOCYTIC LEUKAEMIA
     Route: 048
     Dates: start: 20140730, end: 20141022

REACTIONS (4)
  - Pancytopenia [Fatal]
  - Disease progression [Fatal]
  - Neutropenia [Fatal]
  - Thrombocytopenia [Fatal]
